FAERS Safety Report 6679741-1 (Version None)
Quarter: 2010Q2

REPORT INFORMATION
  Report Type: 
  Country: None (occurrence: None)
  Receive Date: 20100409
  Receipt Date: 20090710
  Transmission Date: 20101027
  Serious: No
  Sender: FDA-Public Use
  Company Number: 2009-00541

PATIENT
  Age: 48 Year
  Sex: Male
  Weight: 98.8842 kg

DRUGS (4)
  1. ZICAM COLD REMEDY GEL SWABS [Suspect]
     Dosage: 2-3TIMES/DAY - 1 COLD : FEB-2009 - 1 COLD
     Dates: start: 20090201
  2. ZICAM COLD REMEDY NASAL GEL [Suspect]
     Dosage: SPORADIC, FEW DOSES : FEB-2009 TILL GONE
     Dates: start: 20090201
  3. HYDROCHLOROTHIAZIDE [Concomitant]
  4. LIPITOR [Concomitant]

REACTIONS (1)
  - ANOSMIA [None]
